FAERS Safety Report 17855292 (Version 2)
Quarter: 2020Q2

REPORT INFORMATION
  Report Type: Spontaneous
  Country: JP (occurrence: JP)
  Receive Date: 20200603
  Receipt Date: 20200609
  Transmission Date: 20200714
  Serious: Yes (Other)
  Sender: FDA-Public Use
  Company Number: JP-BRISTOL-MYERS SQUIBB COMPANY-BMS-2020-040168

PATIENT

DRUGS (1)
  1. OPDIVO [Suspect]
     Active Substance: NIVOLUMAB
     Indication: HEAD AND NECK CANCER
     Dosage: 240 MG, Q2W
     Route: 041

REACTIONS (7)
  - Pyrexia [Unknown]
  - Blood albumin decreased [Unknown]
  - Renal impairment [Unknown]
  - Hepatic function abnormal [Unknown]
  - C-reactive protein increased [Unknown]
  - Arthritis [Unknown]
  - Diarrhoea [Unknown]

NARRATIVE: CASE EVENT DATE: 20200520
